FAERS Safety Report 12986312 (Version 1)
Quarter: 2016Q4

REPORT INFORMATION
  Report Type: Report from Study
  Country: CO (occurrence: CO)
  Receive Date: 20161130
  Receipt Date: 20161130
  Transmission Date: 20170207
  Serious: Yes (Hospitalization)
  Sender: FDA-Public Use
  Company Number: PHHY2016CO161945

PATIENT
  Sex: Female
  Weight: 62 kg

DRUGS (2)
  1. VOTRIENT [Suspect]
     Active Substance: PAZOPANIB HYDROCHLORIDE
     Indication: SOFT TISSUE SARCOMA
     Dosage: 800 MG, QD
     Route: 048
     Dates: start: 20160124
  2. VOTRIENT [Suspect]
     Active Substance: PAZOPANIB HYDROCHLORIDE
     Dosage: 400 MG, QD
     Route: 048

REACTIONS (12)
  - Nausea [Unknown]
  - Arthralgia [Unknown]
  - Chest pain [Unknown]
  - Blood electrolytes increased [Unknown]
  - Headache [Unknown]
  - Productive cough [Unknown]
  - Palmar-plantar erythrodysaesthesia syndrome [Unknown]
  - Decreased appetite [Unknown]
  - Diarrhoea [Unknown]
  - Pneumonia [Unknown]
  - Pyrexia [Unknown]
  - Asphyxia [Unknown]
